FAERS Safety Report 8954499 (Version 2)
Quarter: 2013Q1

REPORT INFORMATION
  Report Type: Spontaneous
  Country: US (occurrence: US)
  Receive Date: 20121209
  Receipt Date: 20130115
  Transmission Date: 20140127
  Serious: Yes (Death, Hospitalization)
  Sender: FDA-Public Use
  Company Number: US-SANOFI-AVENTIS-2012SA087887

PATIENT
  Age: 55 Year
  Sex: 0

DRUGS (1)
  1. LOVENOX [Suspect]
     Route: 058

REACTIONS (1)
  - Breast cancer metastatic [Fatal]
